FAERS Safety Report 17163009 (Version 1)
Quarter: 2019Q4

REPORT INFORMATION
  Report Type: Spontaneous
  Country: US (occurrence: US)
  Receive Date: 20191217
  Receipt Date: 20191217
  Transmission Date: 20200122
  Serious: No
  Sender: FDA-Public Use
  Company Number: NVSC2019US071519

PATIENT
  Age: 42 Year
  Sex: Female

DRUGS (1)
  1. VOTRIENT [Suspect]
     Active Substance: PAZOPANIB HYDROCHLORIDE
     Indication: BENIGN RENAL NEOPLASM
     Dosage: 200 MG, QD
     Route: 048
     Dates: start: 20191211

REACTIONS (3)
  - Product use in unapproved indication [Unknown]
  - Abdominal pain upper [Unknown]
  - Fatigue [Unknown]

NARRATIVE: CASE EVENT DATE: 20191211
